FAERS Safety Report 8832023 (Version 1)
Quarter: 2012Q4

REPORT INFORMATION
  Report Type: 
  Country: IT (occurrence: IT)
  Receive Date: 20121009
  Receipt Date: 20121009
  Transmission Date: 20130627
  Serious: Yes (Other)
  Sender: FDA-Public Use
  Company Number: IT-JNJFOC-20121000844

PATIENT
  Age: 25 Year
  Sex: Male

DRUGS (3)
  1. ZYRTEC [Suspect]
     Route: 048
  2. ZYRTEC [Suspect]
     Indication: ERYTHEMA
     Dosage: 20 tablets total
     Route: 048
     Dates: start: 20120814, end: 20120817
  3. BETAMETHASONE SODIUM PHOSPHATE [Suspect]
     Indication: ERYTHEMA
     Dosage: 10 tablets
     Route: 048
     Dates: start: 20120814, end: 20120817

REACTIONS (1)
  - Dermatitis bullous [Recovering/Resolving]
